FAERS Safety Report 10042804 (Version 1)
Quarter: 2014Q1

REPORT INFORMATION
  Report Type: Spontaneous
  Country: US (occurrence: US)
  Receive Date: 20140327
  Receipt Date: 20140327
  Transmission Date: 20141002
  Serious: Yes (Other)
  Sender: FDA-Public Use
  Company Number: GXBR2014US000951

PATIENT
  Age: 89 Year
  Sex: Female

DRUGS (2)
  1. INFUVITE ADULT [Suspect]
     Indication: NUTRITIONAL SUPPLEMENTATION
     Dosage: 1 DF, ONCE/SINGLE
     Route: 041
     Dates: start: 20140321, end: 20140321
  2. CLINIMIX [Suspect]
     Indication: PARENTERAL NUTRITION
     Dosage: UNK DF, UNK
     Route: 041
     Dates: start: 20140321

REACTIONS (3)
  - Loss of consciousness [Recovered/Resolved]
  - Convulsion [Recovered/Resolved]
  - Bruxism [Recovered/Resolved]
